FAERS Safety Report 13451782 (Version 1)
Quarter: 2017Q2

REPORT INFORMATION
  Report Type: Spontaneous
  Country: US (occurrence: US)
  Receive Date: 20170418
  Receipt Date: 20170418
  Transmission Date: 20170830
  Serious: No
  Sender: FDA-Public Use
  Company Number: None

PATIENT
  Age: 87 Year
  Sex: Female
  Weight: 51.76 kg

DRUGS (4)
  1. AMLODIPINE BESYLATE 2.5MG TAB [Suspect]
     Active Substance: AMLODIPINE BESYLATE
     Indication: HYPERTENSION
     Dosage: 90 PILLS ONE PER DAY BY MOUTH
     Route: 048
     Dates: start: 20170310, end: 20170310
  2. VITAMIN D [Concomitant]
     Active Substance: CHOLECALCIFEROL
  3. ALPRAZOLAM. [Concomitant]
     Active Substance: ALPRAZOLAM
  4. BABY ASPIRIN [Concomitant]
     Active Substance: ASPIRIN

REACTIONS (1)
  - Gluten sensitivity [None]

NARRATIVE: CASE EVENT DATE: 20170310
